FAERS Safety Report 11693530 (Version 3)
Quarter: 2016Q3

REPORT INFORMATION
  Report Type: Report from Study
  Country: AU (occurrence: AU)
  Receive Date: 20151103
  Receipt Date: 20160712
  Transmission Date: 20161109
  Serious: Yes (Death, Other)
  Sender: FDA-Public Use
  Company Number: PHHO2015AU015536

PATIENT
  Age: 70 Year
  Sex: Male

DRUGS (44)
  1. PAZOPANIB [Suspect]
     Active Substance: PAZOPANIB
     Indication: RENAL CELL CARCINOMA
     Dosage: UNK
     Route: 048
  2. MOVICOL [Concomitant]
     Active Substance: POLYETHYLENE GLYCOL 3350\POTASSIUM CHLORIDE\SODIUM BICARBONATE\SODIUM CHLORIDE
     Indication: CONSTIPATION PROPHYLAXIS
     Dosage: 1 QD
     Route: 048
     Dates: start: 20120501, end: 20140101
  3. OXYCONTIN [Concomitant]
     Active Substance: OXYCODONE HYDROCHLORIDE
     Indication: CHEST PAIN
     Dosage: 20 BID
     Route: 048
     Dates: start: 20120501, end: 20121009
  4. FLUDROCORTISONE [Concomitant]
     Active Substance: FLUDROCORTISONE
     Indication: ADRENAL INSUFFICIENCY
     Dosage: 100 QD
     Route: 048
     Dates: start: 20091201, end: 20140601
  5. CLEXANE [Concomitant]
     Active Substance: ENOXAPARIN SODIUM
     Indication: DEEP VEIN THROMBOSIS
     Dosage: 60 QD
     Route: 058
     Dates: start: 20120801, end: 20130319
  6. AMLODIPINE [Concomitant]
     Active Substance: AMLODIPINE BESYLATE
     Dosage: 5 QD
     Route: 048
     Dates: start: 20141201, end: 20150427
  7. FRUSEMIDE [Concomitant]
     Active Substance: FUROSEMIDE
     Dosage: 20 5 TIMES PER WEEK
     Route: 048
     Dates: start: 20131121, end: 20140113
  8. SPIRONOLACTONE. [Concomitant]
     Active Substance: SPIRONOLACTONE
     Dosage: 25 3 TIMES PER WEEK
     Route: 048
     Dates: start: 20130809, end: 20131120
  9. OXYCONTIN [Concomitant]
     Active Substance: OXYCODONE HYDROCHLORIDE
     Dosage: 10 BID
     Route: 048
     Dates: start: 20121010
  10. SPIRONOLACTONE. [Concomitant]
     Active Substance: SPIRONOLACTONE
     Dosage: 25 2 TIMES PER WEEK
     Route: 048
     Dates: start: 20140114, end: 20140311
  11. SPIRONOLACTONE. [Concomitant]
     Active Substance: SPIRONOLACTONE
     Dosage: 0.5 QD
     Route: 048
     Dates: start: 20140312, end: 20140324
  12. KEFLEX [Concomitant]
     Active Substance: CEPHALEXIN
     Indication: SKIN ULCER
     Dosage: UNK
     Route: 048
     Dates: start: 20140801, end: 20140801
  13. MINAX [Concomitant]
     Active Substance: METAMIZOLE
     Indication: HYPERTENSION
     Dosage: 25 BID
     Route: 048
     Dates: start: 20150427
  14. BURINEX [Concomitant]
     Active Substance: BUMETANIDE
     Dosage: 2 QD
     Route: 048
     Dates: start: 20150428
  15. FRUSEMIDE [Concomitant]
     Active Substance: FUROSEMIDE
     Indication: OEDEMA PERIPHERAL
     Dosage: 20 QD
     Route: 048
     Dates: start: 20120912, end: 20130412
  16. FRUSEMIDE [Concomitant]
     Active Substance: FUROSEMIDE
     Dosage: 20 2 TIMES PER WEEK
     Route: 048
     Dates: start: 20130618, end: 20130809
  17. WARFARIN [Concomitant]
     Active Substance: WARFARIN
     Indication: DEEP VEIN THROMBOSIS
     Dosage: QD
     Route: 048
     Dates: start: 20130320
  18. INNER HEALTH PLUS [Concomitant]
     Indication: PRODUCT USED FOR UNKNOWN INDICATION
     Dosage: UNK
     Route: 048
     Dates: start: 20140101
  19. BURINEX [Concomitant]
     Active Substance: BUMETANIDE
     Dosage: 1 QD
     Route: 048
     Dates: start: 20140723, end: 20150427
  20. SLOW-K [Concomitant]
     Active Substance: POTASSIUM CHLORIDE
     Indication: HYPOKALAEMIC SYNDROME
     Dosage: 1 BID
     Route: 048
     Dates: start: 20130109, end: 20130507
  21. CALCITROL [Concomitant]
     Active Substance: CALCITRIOL
     Dosage: 0.25 EVERY OTHER DAY
     Route: 048
     Dates: start: 20140601, end: 20150427
  22. KEFLEX [Concomitant]
     Active Substance: CEPHALEXIN
     Indication: URINARY TRACT INFECTION
     Dosage: UNK
     Route: 048
     Dates: start: 20140217, end: 20140223
  23. GASTRO-STOP [Concomitant]
     Active Substance: LOPERAMIDE
     Indication: DIARRHOEA
     Dosage: 1 PRN
     Route: 048
     Dates: start: 20131201
  24. BURINEX [Concomitant]
     Active Substance: BUMETANIDE
     Dosage: 1 BID
     Route: 048
     Dates: start: 20140601, end: 20140723
  25. FLUDROCORTISONE [Concomitant]
     Active Substance: FLUDROCORTISONE
     Dosage: 100 QD
     Route: 048
     Dates: start: 20140601, end: 20150427
  26. AMLODIPINE [Concomitant]
     Active Substance: AMLODIPINE BESYLATE
     Indication: HYPERTENSION
     Dosage: 10 QD
     Route: 048
     Dates: start: 20120801, end: 20150427
  27. FRUSEMIDE [Concomitant]
     Active Substance: FUROSEMIDE
     Dosage: 20 4 TIMES PER WEEK
     Route: 048
     Dates: start: 20130810, end: 20131120
  28. FRUSEMIDE [Concomitant]
     Active Substance: FUROSEMIDE
     Dosage: 20 4 TIMES PER WEEK
     Route: 048
     Dates: start: 20140114, end: 20140311
  29. SLOW-K [Concomitant]
     Active Substance: POTASSIUM CHLORIDE
     Dosage: 1 BID
     Route: 048
     Dates: start: 20130614, end: 20130809
  30. CALCITROL [Concomitant]
     Active Substance: CALCITRIOL
     Indication: OSTEOPOROSIS
     Dosage: 0.25 QD
     Route: 048
     Dates: start: 20140217, end: 20140601
  31. GABAPENTIN. [Concomitant]
     Active Substance: GABAPENTIN
     Indication: CHEST PAIN
     Dosage: 100 BID
     Route: 048
     Dates: start: 20120808, end: 20130101
  32. GABAPENTIN. [Concomitant]
     Active Substance: GABAPENTIN
     Dosage: 100 TID
     Route: 048
     Dates: start: 20130101, end: 20130601
  33. GABAPENTIN. [Concomitant]
     Active Substance: GABAPENTIN
     Dosage: 100 QD
     Route: 048
     Dates: start: 20130601
  34. BURINEX [Concomitant]
     Active Substance: BUMETANIDE
     Indication: OEDEMA PERIPHERAL
     Dosage: 1 TID
     Route: 048
     Dates: start: 20140601, end: 20140601
  35. FLUDROCORTISONE [Concomitant]
     Active Substance: FLUDROCORTISONE
     Dosage: 150 QD
     Route: 048
     Dates: start: 20150427
  36. RESONIUM [Concomitant]
     Active Substance: SODIUM POLYSTYRENE SULFONATE
     Indication: HYPERKALAEMIA
     Dosage: UNK
     Route: 048
     Dates: start: 20130507
  37. PREDNISOLONE. [Suspect]
     Active Substance: PREDNISOLONE
     Indication: ADRENAL INSUFFICIENCY
     Dosage: 7.5
     Route: 048
     Dates: start: 20120622
  38. FRUSEMIDE [Concomitant]
     Active Substance: FUROSEMIDE
     Dosage: 20 QD
     Route: 048
     Dates: start: 20130501, end: 20130507
  39. FRUSEMIDE [Concomitant]
     Active Substance: FUROSEMIDE
     Dosage: PRN
     Route: 048
     Dates: start: 20140312, end: 20140601
  40. FRUSEMIDE [Concomitant]
     Active Substance: FUROSEMIDE
     Dosage: 40 QD
     Route: 048
     Dates: start: 20130413, end: 20130430
  41. OMEPRAZOLE. [Concomitant]
     Active Substance: OMEPRAZOLE
     Indication: DYSPEPSIA
     Dosage: 20 QD
     Route: 048
     Dates: start: 20121002, end: 20121006
  42. SPIRONOLACTONE. [Concomitant]
     Active Substance: SPIRONOLACTONE
     Indication: OEDEMA PERIPHERAL
     Dosage: 25 QD
     Route: 048
     Dates: start: 20130412, end: 20130430
  43. SPIRONOLACTONE. [Concomitant]
     Active Substance: SPIRONOLACTONE
     Dosage: 25 4 TIMES PER WEEK
     Route: 048
     Dates: start: 20131121, end: 20140113
  44. DENOSUMAB [Concomitant]
     Active Substance: DENOSUMAB
     Indication: OSTEOPOROSIS
     Dosage: 60
     Route: 058
     Dates: start: 20140217

REACTIONS (2)
  - Septic shock [Fatal]
  - Multiple organ dysfunction syndrome [Fatal]

NARRATIVE: CASE EVENT DATE: 20150701
